FAERS Safety Report 7545290-1 (Version None)
Quarter: 2011Q2

REPORT INFORMATION
  Report Type: 
  Country: None (occurrence: None)
  Receive Date: 20110614
  Receipt Date: 20110608
  Transmission Date: 20111010
  Serious: Yes (Hospitalization, Other)
  Sender: FDA-Public Use
  Company Number: US-JNJFOC-20100805606

PATIENT
  Sex: Female

DRUGS (2)
  1. LEVAQUIN [Suspect]
     Indication: URINARY TRACT INFECTION
     Route: 048
     Dates: start: 20040101, end: 20040101
  2. LEVAQUIN [Suspect]
     Indication: LOCALISED INFECTION
     Route: 048
     Dates: start: 20040101, end: 20040101

REACTIONS (5)
  - TENDON RUPTURE [None]
  - FOOT FRACTURE [None]
  - NAUSEA [None]
  - BLISTER INFECTED [None]
  - TENOSYNOVITIS [None]
